FAERS Safety Report 8250506-2 (Version None)
Quarter: 2012Q2

REPORT INFORMATION
  Report Type: 
  Country: None (occurrence: None)
  Receive Date: 20120402
  Receipt Date: 20120402
  Transmission Date: 20120825
  Serious: Yes (Death)
  Sender: FDA-Public Use
  Company Number: None

PATIENT
  Sex: Female
  Weight: 65.77 kg

DRUGS (1)
  1. AMITIZA [Suspect]
     Indication: CONSTIPATION
     Dosage: 24 MCG  -3 8MCG CAPSULES-
     Route: 048
     Dates: start: 20120116, end: 20120123

REACTIONS (2)
  - COMA HEPATIC [None]
  - GENERAL PHYSICAL HEALTH DETERIORATION [None]
